FAERS Safety Report 5699556-0 (Version None)
Quarter: 2008Q2

REPORT INFORMATION
  Report Type: 
  Country: None (occurrence: None)
  Receive Date: 20080408
  Receipt Date: 20080408
  Transmission Date: 20081010
  Serious: No
  Sender: FDA-Public Use
  Company Number: None

PATIENT

DRUGS (2)
  1. ASPIRIN [Suspect]
     Dosage: TABLET
  2. DIGOXIN [Suspect]
     Dosage: TABLET

REACTIONS (4)
  - DRUG DISPENSING ERROR [None]
  - DRUG DOSE OMISSION [None]
  - HEART RATE INCREASED [None]
  - WRONG DRUG ADMINISTERED [None]
